FAERS Safety Report 22733341 (Version 2)
Quarter: 2023Q4

REPORT INFORMATION
  Report Type: Spontaneous
  Country: US (occurrence: US)
  Receive Date: 20230720
  Receipt Date: 20231115
  Transmission Date: 20240109
  Serious: No
  Sender: FDA-Public Use
  Company Number: US-NOVOPROD-1020887

PATIENT
  Sex: Female

DRUGS (2)
  1. OZEMPIC [Suspect]
     Active Substance: SEMAGLUTIDE
     Indication: Product used for unknown indication
     Dosage: 1.0MG
     Route: 058
     Dates: start: 20230103
  2. NOVOLOG [Suspect]
     Active Substance: INSULIN ASPART
     Indication: Product used for unknown indication
     Dosage: 20 IU, BID
     Route: 058
     Dates: start: 2022

REACTIONS (7)
  - Dyspnoea [Unknown]
  - Mental impairment [Unknown]
  - Abdominal discomfort [Unknown]
  - Dysstasia [Unknown]
  - Weight decreased [Unknown]
  - Off label use [Unknown]
  - Product dispensing error [Unknown]
